FAERS Safety Report 7304813-8 (Version None)
Quarter: 2011Q1

REPORT INFORMATION
  Report Type: 
  Country: None (occurrence: None)
  Receive Date: 20110222
  Receipt Date: 20110218
  Transmission Date: 20110831
  Serious: No
  Sender: FDA-Public Use
  Company Number: US-PFIZER INC-2011036668

PATIENT
  Sex: Female
  Weight: 63.492 kg

DRUGS (1)
  1. XANAX [Suspect]
     Indication: PANIC ATTACK
     Dosage: 1.5 MG, 3X/DAY
     Route: 048
     Dates: start: 19920101

REACTIONS (4)
  - FEAR [None]
  - DRUG INEFFECTIVE [None]
  - BURNING SENSATION [None]
  - FEELING JITTERY [None]
